FAERS Safety Report 14647004 (Version 1)
Quarter: 2018Q1

REPORT INFORMATION
  Report Type: Spontaneous
  Country: JP (occurrence: JP)
  Receive Date: 20180316
  Receipt Date: 20180316
  Transmission Date: 20180509
  Serious: Yes (Other)
  Sender: FDA-Public Use
  Company Number: JP-CONCORDIA PHARMACEUTICALS INC.-GSH201803-000962

PATIENT
  Age: 26 Year
  Sex: Female

DRUGS (8)
  1. PROGRAF [Suspect]
     Active Substance: TACROLIMUS\TACROLIMUS ANHYDROUS
     Indication: LUPUS NEPHRITIS
     Route: 048
     Dates: start: 20110208, end: 20170721
  2. PROGRAF [Suspect]
     Active Substance: TACROLIMUS\TACROLIMUS ANHYDROUS
     Route: 048
     Dates: start: 20170721
  3. PLAQUENIL [Suspect]
     Active Substance: HYDROXYCHLOROQUINE SULFATE
     Route: 048
     Dates: start: 20170721, end: 20170728
  4. PREDNISOLONE. [Concomitant]
     Active Substance: PREDNISOLONE
     Dates: start: 20100513
  5. PLAQUENIL [Suspect]
     Active Substance: HYDROXYCHLOROQUINE SULFATE
     Indication: SYSTEMIC LUPUS ERYTHEMATOSUS
     Route: 048
     Dates: start: 20170707, end: 20170714
  6. FEBURIC [Concomitant]
     Active Substance: FEBUXOSTAT
     Dates: start: 20140509
  7. PREDONINE [Concomitant]
     Active Substance: PREDNISOLONE
     Dates: start: 20100513
  8. ALFAROL [Concomitant]
     Active Substance: ALFACALCIDOL
     Dates: start: 20170509

REACTIONS (5)
  - Dizziness [Recovered/Resolved]
  - Pyrexia [Unknown]
  - Rhabdomyolysis [Recovered/Resolved]
  - Myalgia [Unknown]
  - Blood creatine phosphokinase increased [Recovered/Resolved]

NARRATIVE: CASE EVENT DATE: 20170708
